FAERS Safety Report 25794869 (Version 1)
Quarter: 2025Q3

REPORT INFORMATION
  Report Type: Spontaneous
  Country: US (occurrence: US)
  Receive Date: 20250912
  Receipt Date: 20250912
  Transmission Date: 20251020
  Serious: Yes (Hospitalization, Other)
  Sender: GLAXOSMITHKLINE
  Company Number: US-GSK-US2025GSK113991

PATIENT
  Age: 17 Year
  Sex: Female

DRUGS (1)
  1. SUMATRIPTAN SUCCINATE [Suspect]
     Active Substance: SUMATRIPTAN SUCCINATE
     Indication: Migraine

REACTIONS (5)
  - Encephalitis [Recovered/Resolved]
  - Myelin oligodendrocyte glycoprotein antibody-associated disease [Recovered/Resolved]
  - Hemiparesis [Recovered/Resolved]
  - Pneumonia mycoplasmal [Recovered/Resolved]
  - Accidental overdose [Unknown]
